FAERS Safety Report 4313487-X (Version None)
Quarter: 2004Q1

REPORT INFORMATION
  Report Type: 
  Country: None (occurrence: None)
  Receive Date: 20040308
  Receipt Date: 20040219
  Transmission Date: 20041129
  Serious: Yes (Hospitalization)
  Sender: FDA-Public Use
  Company Number: US-ROCHE-359443

PATIENT
  Age: 48 Year
  Sex: Male
  Weight: 81.6 kg

DRUGS (6)
  1. ROCEPHIN [Suspect]
     Indication: OSTEOMYELITIS
     Route: 042
     Dates: start: 20040216, end: 20040218
  2. PAIN MEDICATION [Concomitant]
  3. NS [Concomitant]
     Dosage: INDICATION DESCRIBED AS FLUSH WITH IV ANTIBIOTICS.
     Route: 042
     Dates: start: 20040216
  4. HEPARIN [Concomitant]
     Dosage: INDICATION DESCRIBED AS FLUSH WITH IV ANTIBIOTICS.
     Route: 042
     Dates: start: 20040216
  5. OXYCONTIN [Concomitant]
     Indication: PAIN
     Route: 048
  6. ZOLOFT [Concomitant]
     Indication: DEPRESSION
     Route: 048

REACTIONS (4)
  - COMA [None]
  - HYPERHIDROSIS [None]
  - HYPERSENSITIVITY [None]
  - LOSS OF CONSCIOUSNESS [None]
